FAERS Safety Report 17330503 (Version 1)
Quarter: 2020Q1

REPORT INFORMATION
  Report Type: Spontaneous
  Country: US (occurrence: US)
  Receive Date: 20200110
  Receipt Date: 20200110
  Transmission Date: 20200409
  Serious: Yes (Death)
  Sender: FDA-Public Use
  Company Number: None

PATIENT
  Sex: Male

DRUGS (13)
  1. HYDROMORPHON [Concomitant]
     Active Substance: HYDROMORPHONE
  2. DEXAMTHASON [Concomitant]
  3. A-HYDROCORT [Concomitant]
     Active Substance: HYDROCORTISONE SODIUM SUCCINATE
  4. LACTULOSE. [Concomitant]
     Active Substance: LACTULOSE
  5. PREDNISONE. [Concomitant]
     Active Substance: PREDNISONE
  6. XALKORI [Suspect]
     Active Substance: CRIZOTINIB
     Indication: METASTASES TO GASTROINTESTINAL TRACT
     Route: 048
     Dates: start: 20191210
  7. RANITIDINE. [Concomitant]
     Active Substance: RANITIDINE
  8. LOAZEPAM [Concomitant]
     Active Substance: LORAZEPAM
  9. METHYLPRED [Concomitant]
     Active Substance: METHYLPREDNISOLONE
  10. IBUPROFEN. [Concomitant]
     Active Substance: IBUPROFEN
  11. LEVOFLOXACIN. [Concomitant]
     Active Substance: LEVOFLOXACIN
  12. ONDANSETRON [Concomitant]
     Active Substance: ONDANSETRON
  13. PANTOPRAZOLE [Concomitant]
     Active Substance: PANTOPRAZOLE

REACTIONS (1)
  - Death [None]
